FAERS Safety Report 5847455-3 (Version None)
Quarter: 2008Q3

REPORT INFORMATION
  Report Type: 
  Country: None (occurrence: None)
  Receive Date: 20080813
  Receipt Date: 20080730
  Transmission Date: 20090109
  Serious: No
  Sender: FDA-Public Use
  Company Number: 003004

PATIENT
  Age: 66 Year
  Sex: Male

DRUGS (2)
  1. CILOSTAZOL [Suspect]
     Dosage: 100 MG, DAILY DOSE, ORAL
     Route: 048
  2. PREDNISONE [Concomitant]

REACTIONS (8)
  - CEREBRAL INFARCTION [None]
  - DELIRIUM [None]
  - MARROW HYPERPLASIA [None]
  - MICROANGIOPATHIC HAEMOLYTIC ANAEMIA [None]
  - PSYCHIATRIC SYMPTOM [None]
  - PYREXIA [None]
  - RENAL IMPAIRMENT [None]
  - THROMBOTIC THROMBOCYTOPENIC PURPURA [None]
